FAERS Safety Report 6146783-4 (Version None)
Quarter: 2009Q2

REPORT INFORMATION
  Report Type: 
  Country: None (occurrence: None)
  Receive Date: 20090407
  Receipt Date: 20090402
  Transmission Date: 20091009
  Serious: Yes (Hospitalization)
  Sender: FDA-Public Use
  Company Number: US-B.I. PHARMACEUTICALS,INC./RIDGEFIELD-2009-BP-04120BP

PATIENT
  Age: 75 Year
  Sex: Male

DRUGS (8)
  1. FLOMAX [Suspect]
     Indication: BENIGN PROSTATIC HYPERPLASIA
     Dosage: .4MG
     Route: 048
     Dates: start: 20000101
  2. LISINOPRIL [Concomitant]
     Indication: HYPERTENSION
  3. TRICOR [Concomitant]
     Indication: BLOOD CHOLESTEROL INCREASED
  4. OMEPRAZOLE [Concomitant]
     Indication: GASTROOESOPHAGEAL REFLUX DISEASE
  5. METOPROLOL TARTRATE [Concomitant]
     Indication: HYPERTENSION
  6. ASPIRIN [Concomitant]
     Indication: PROPHYLAXIS
  7. CLONAZEPAM [Concomitant]
     Indication: SLEEP APNOEA SYNDROME
  8. LIPITOR [Concomitant]
     Indication: BLOOD CHOLESTEROL INCREASED

REACTIONS (5)
  - AORTIC ANEURYSM [None]
  - ATRIAL FIBRILLATION [None]
  - CATARACT [None]
  - CORONARY ARTERY OCCLUSION [None]
  - TYPE 2 DIABETES MELLITUS [None]
